FAERS Safety Report 5156762-1 (Version None)
Quarter: 2006Q4

REPORT INFORMATION
  Report Type: 
  Country: None (occurrence: None)
  Receive Date: 20061115
  Receipt Date: 20061030
  Transmission Date: 20070319
  Serious: Yes (Hospitalization)
  Sender: FDA-Public Use
  Company Number: APP200600300

PATIENT
  Age: 46 Year
  Sex: Male

DRUGS (10)
  1. FLUOROURACIL [Suspect]
     Indication: GASTRIC CANCER
     Dosage: CYCLICAL, INTRAVENOUS ; 1680 MG (1680 MG, 1 IN 1 D) INTRAVENOUS
     Route: 042
     Dates: start: 20060803, end: 20060808
  2. FLUOROURACIL [Suspect]
     Indication: GASTRIC CANCER
     Dosage: CYCLICAL, INTRAVENOUS ; 1680 MG (1680 MG, 1 IN 1 D) INTRAVENOUS
     Route: 042
     Dates: start: 20060703
  3. CISPLATIN [Suspect]
     Indication: GASTRIC CANCER
     Dosage: CYCLICAL, INTRAVENOUS;  (170 MG, 1 IN 28 D), INTRAVENOUS
     Route: 042
     Dates: start: 20060803, end: 20060820
  4. CISPLATIN [Suspect]
     Indication: GASTRIC CANCER
     Dosage: CYCLICAL, INTRAVENOUS;  (170 MG, 1 IN 28 D), INTRAVENOUS
     Route: 042
     Dates: start: 20060703
  5. COMPAZINE [Concomitant]
  6. FLUCONAZOLE [Concomitant]
  7. NEXIUM [Concomitant]
  8. AUGMENTIN ER [Concomitant]
  9. FLAGYL [Concomitant]
  10. CIPRO [Concomitant]

REACTIONS (6)
  - BLOOD POTASSIUM DECREASED [None]
  - DEHYDRATION [None]
  - DIVERTICULITIS [None]
  - HYPOTENSION [None]
  - LOSS OF CONSCIOUSNESS [None]
  - SYNCOPE [None]
